FAERS Safety Report 5021236-5 (Version None)
Quarter: 2006Q2

REPORT INFORMATION
  Report Type: 
  Country: None (occurrence: None)
  Receive Date: 20060608
  Receipt Date: 20060519
  Transmission Date: 20061013
  Serious: Yes (Hospitalization)
  Sender: FDA-Public Use
  Company Number: JP-ROCHE-448598

PATIENT
  Age: 61 Year
  Sex: Male

DRUGS (11)
  1. PANALDINE [Suspect]
     Indication: THROMBOSIS PROPHYLAXIS
     Dosage: INDICATION ALSO REPORTED AS ATHEROSCLEROSIS OBLITERANS
     Route: 048
     Dates: end: 20060510
  2. DORNER [Concomitant]
     Route: 048
     Dates: end: 20060510
  3. RIBALL [Concomitant]
     Route: 048
     Dates: end: 20060510
  4. DIOVAN [Concomitant]
     Indication: HYPERTENSION
     Route: 048
     Dates: end: 20060510
  5. LUVOX [Concomitant]
     Indication: DEPRESSION
     Route: 048
     Dates: end: 20060513
  6. HORIZON [Concomitant]
     Indication: DEPRESSION
     Route: 048
     Dates: end: 20060513
  7. TETRAMIDE [Concomitant]
     Indication: DEPRESSION
     Route: 048
     Dates: end: 20060513
  8. ROHYPNOL [Concomitant]
     Indication: INSOMNIA
     Route: 048
     Dates: end: 20060513
  9. TAKEPRON [Concomitant]
     Indication: GASTRIC ULCER
     Route: 048
     Dates: end: 20060513
  10. ULCERLMIN [Concomitant]
     Indication: GASTRIC ULCER
     Route: 048
     Dates: end: 20060513
  11. TORSEMIDE [Concomitant]
     Route: 048
     Dates: end: 20060513

REACTIONS (5)
  - ARTHRALGIA [None]
  - HAEMOGLOBIN DECREASED [None]
  - HEADACHE [None]
  - INTERSTITIAL LUNG DISEASE [None]
  - PYREXIA [None]
